FAERS Safety Report 21198215 (Version 1)
Quarter: 2022Q3

REPORT INFORMATION
  Report Type: Report from Study
  Country: US (occurrence: US)
  Receive Date: 20220811
  Receipt Date: 20220811
  Transmission Date: 20221026
  Serious: Yes (Other)
  Sender: FDA-Public Use
  Company Number: US-BRISTOL-MYERS SQUIBB COMPANY-2022-086236

PATIENT
  Age: 64 Year
  Sex: Female
  Weight: 63.5 kg

DRUGS (10)
  1. REVLIMID [Suspect]
     Active Substance: LENALIDOMIDE
     Indication: Plasma cell myeloma
     Dosage: EVERY 48 HOURS
     Route: 048
     Dates: start: 20161212
  2. ASPIRIN [Concomitant]
     Active Substance: ASPIRIN
  3. METOPROLOL TARTRATE [Concomitant]
     Active Substance: METOPROLOL TARTRATE
  4. MINERALS\VITAMINS [Concomitant]
     Active Substance: MINERALS\VITAMINS
  5. CALCITRIOL [Concomitant]
     Active Substance: CALCITRIOL
  6. OXYCODONE [Concomitant]
     Active Substance: OXYCODONE
  7. ACYCLOVIR [Concomitant]
     Active Substance: ACYCLOVIR
  8. BUPROPION [Concomitant]
     Active Substance: BUPROPION
  9. VEMLIDY [Concomitant]
     Active Substance: TENOFOVIR ALAFENAMIDE FUMARATE
  10. POTASSIUM CHLORIDE [Concomitant]
     Active Substance: POTASSIUM CHLORIDE

REACTIONS (2)
  - Haemorrhage subcutaneous [Unknown]
  - Off label use [Unknown]
